FAERS Safety Report 22766809 (Version 2)
Quarter: 2024Q4

REPORT INFORMATION
  Report Type: Report from Study
  Country: US (occurrence: US)
  Receive Date: 20230731
  Receipt Date: 20241022
  Transmission Date: 20250115
  Serious: Yes (Other)
  Sender: JAZZ
  Company Number: US-JAZZ-2022-US-024087

PATIENT
  Sex: Female
  Weight: 60 kg

DRUGS (5)
  1. XYREM [Suspect]
     Active Substance: SODIUM OXYBATE
     Indication: Insomnia
     Dosage: 5 GRAM, BID AND MAY TAKE 2.5 G LATER MAY TAKE AN ADDITIONAL THIRD DOSE OF 5 GRAM
  2. XYREM [Suspect]
     Active Substance: SODIUM OXYBATE
     Dosage: TAKE 5 GM (10ML) BY MOUTH DILUTED IN 60ML OF WATER AT BEDTIME AND REPEAT 2 1/2 HOURS TO 4 HRS LATER,
  3. ARMOUR THYROID [Concomitant]
     Active Substance: THYROID, PORCINE
     Indication: Product used for unknown indication
     Dosage: UNK
     Dates: start: 20160901
  4. LOSARTAN [Concomitant]
     Active Substance: LOSARTAN
     Indication: Product used for unknown indication
     Dosage: UNK
     Dates: start: 20180601
  5. DIETARY SUPPLEMENT [Concomitant]
     Active Substance: DIETARY SUPPLEMENT
     Indication: Product used for unknown indication
     Dosage: UNK
     Dates: start: 20181201

REACTIONS (4)
  - Spinal stenosis [Recovered/Resolved]
  - Personality disorder [Unknown]
  - Prescribed overdose [Unknown]
  - Product administration interrupted [Unknown]
